FAERS Safety Report 7073803-5 (Version None)
Quarter: 2010Q4

REPORT INFORMATION
  Report Type: 
  Country: None (occurrence: None)
  Receive Date: 20101029
  Receipt Date: 20100817
  Transmission Date: 20110411
  Serious: No
  Sender: FDA-Public Use
  Company Number: A0876358A

PATIENT
  Age: 63 Year
  Sex: Female

DRUGS (8)
  1. ADVAIR DISKUS 100/50 [Suspect]
     Indication: ASTHMA
     Dosage: 1PUFF TWICE PER DAY
     Route: 055
     Dates: start: 20010101
  2. VENTOLIN HFA [Concomitant]
  3. THEOPHYLLINE [Concomitant]
  4. PRILOSEC [Concomitant]
  5. SYNTHROID [Concomitant]
  6. POLYETHYLENE GLYCOL [Concomitant]
  7. FLUTICASONE PROPIONATE [Concomitant]
  8. OXYGEN [Concomitant]

REACTIONS (2)
  - ARTHRITIS [None]
  - OSTEOPOROSIS [None]
